FAERS Safety Report 6676194-4 (Version None)
Quarter: 2010Q2

REPORT INFORMATION
  Report Type: 
  Country: None (occurrence: None)
  Receive Date: 20100412
  Receipt Date: 20100401
  Transmission Date: 20101027
  Serious: Yes (Other)
  Sender: FDA-Public Use
  Company Number: US-JNJFOC-20091203824

PATIENT
  Sex: Female
  Weight: 113.4 kg

DRUGS (5)
  1. REMICADE [Suspect]
     Indication: ANKYLOSING SPONDYLITIS
     Route: 042
     Dates: start: 20091203
  2. AMLODIPINE [Concomitant]
     Indication: HYPERTENSION
     Route: 065
  3. MELATONIN [Concomitant]
     Indication: SLEEP DISORDER THERAPY
     Route: 065
  4. AMITRIPTYLINE HCL [Concomitant]
     Indication: SLEEP DISORDER THERAPY
     Route: 065
  5. HERBALS NOS W/VITAMINS NOS [Concomitant]
     Route: 065

REACTIONS (4)
  - DIARRHOEA [None]
  - FATIGUE [None]
  - FOOD POISONING [None]
  - PELVIC PAIN [None]
